FAERS Safety Report 17418019 (Version 6)
Quarter: 2021Q4

REPORT INFORMATION
  Report Type: Report from Study
  Country: US (occurrence: US)
  Receive Date: 20200214
  Receipt Date: 20211223
  Transmission Date: 20220303
  Serious: No
  Sender: FDA-Public Use
  Company Number: NVSC2020US032902

PATIENT
  Age: 4 Year
  Sex: Female

DRUGS (4)
  1. ILARIS [Suspect]
     Active Substance: CANAKINUMAB
     Indication: Pyrexia
     Dosage: 30 MG, Q4W
     Route: 058
     Dates: start: 20191107
  2. ILARIS [Suspect]
     Active Substance: CANAKINUMAB
     Dosage: 30MG, Q6 WEEKS
     Route: 058
     Dates: start: 20190512
  3. ILARIS [Suspect]
     Active Substance: CANAKINUMAB
     Dosage: UNK (PRESENT)
     Route: 065
  4. ILARIS [Suspect]
     Active Substance: CANAKINUMAB
     Route: 058

REACTIONS (7)
  - Pyrexia [Unknown]
  - Injection site pruritus [Unknown]
  - Urticaria [Unknown]
  - Influenza [Unknown]
  - Injection site reaction [Unknown]
  - Cough [Unknown]
  - Product use issue [Unknown]

NARRATIVE: CASE EVENT DATE: 20190130
